FAERS Safety Report 5475148-3 (Version None)
Quarter: 2007Q4

REPORT INFORMATION
  Report Type: 
  Country: None (occurrence: None)
  Receive Date: 20071002
  Receipt Date: 20070921
  Transmission Date: 20080405
  Serious: Yes (Other)
  Sender: FDA-Public Use
  Company Number: JP-PFIZER INC-2007075338

PATIENT
  Age: 59 Year
  Sex: Female

DRUGS (2)
  1. AROMASIN [Suspect]
     Indication: BREAST CANCER
     Route: 048
     Dates: start: 20070423, end: 20070709
  2. LORAZEPAM [Suspect]
     Indication: ANXIETY
     Dosage: DAILY DOSE:2MG-FREQ:CYCLIC : CYCLIC
     Route: 048
     Dates: start: 20061201, end: 20070709

REACTIONS (1)
  - HEPATIC FUNCTION ABNORMAL [None]
